FAERS Safety Report 14642292 (Version 2)
Quarter: 2018Q2

REPORT INFORMATION
  Report Type: Report from Study
  Country: US (occurrence: US)
  Receive Date: 20180315
  Receipt Date: 20180410
  Transmission Date: 20180711
  Serious: Yes (Hospitalization, Other)
  Sender: FDA-Public Use
  Company Number: US-GILEAD-2018-0325726

PATIENT
  Age: 45 Year
  Sex: Male

DRUGS (9)
  1. DIGOXIN. [Concomitant]
     Active Substance: DIGOXIN
  2. METOPROLOL. [Concomitant]
     Active Substance: METOPROLOL
  3. SPIRONOLACTONE. [Concomitant]
     Active Substance: SPIRONOLACTONE
  4. AMIODARONE [Concomitant]
     Active Substance: AMIODARONE
  5. AMBRISENTAN [Suspect]
     Active Substance: AMBRISENTAN
     Indication: PULMONARY ARTERIAL HYPERTENSION
     Dosage: 10 MG, QD
     Route: 065
  6. WARFARIN [Concomitant]
     Active Substance: WARFARIN
  7. FUROSEMIDE. [Concomitant]
     Active Substance: FUROSEMIDE
  8. REVATIO [Concomitant]
     Active Substance: SILDENAFIL CITRATE
  9. KCL [Concomitant]
     Active Substance: POTASSIUM CHLORIDE

REACTIONS (2)
  - Atrial fibrillation [Recovered/Resolved]
  - Intentional dose omission [Recovered/Resolved]

NARRATIVE: CASE EVENT DATE: 20180301
